FAERS Safety Report 5739592-9 (Version None)
Quarter: 2008Q2

REPORT INFORMATION
  Report Type: 
  Country: None (occurrence: None)
  Receive Date: 20080513
  Receipt Date: 20080422
  Transmission Date: 20081010
  Serious: Yes (Hospitalization)
  Sender: FDA-Public Use
  Company Number: CFNTY-228

PATIENT
  Age: 71 Year
  Sex: Male

DRUGS (2)
  1. CEFDITOREN PIVOXIL 400 MG [Suspect]
  2. DEFLAZACORT (ZAMENE) [Concomitant]

REACTIONS (1)
  - VISUAL ACUITY REDUCED [None]
